FAERS Safety Report 21195942 (Version 1)
Quarter: 2022Q3

REPORT INFORMATION
  Report Type: Spontaneous
  Country: US (occurrence: US)
  Receive Date: 20220810
  Receipt Date: 20220810
  Transmission Date: 20221027
  Serious: Yes (Other)
  Sender: FDA-Public Use
  Company Number: US-ALLERGAN-2223203US

PATIENT
  Sex: Male

DRUGS (3)
  1. DURYSTA [Suspect]
     Active Substance: BIMATOPROST
     Indication: Open angle glaucoma
     Dosage: 10 ?G, SINGLE
     Route: 031
     Dates: start: 20211115, end: 20211115
  2. DURYSTA [Suspect]
     Active Substance: BIMATOPROST
     Indication: Open angle glaucoma
     Dosage: 10 ?G, SINGLE
     Route: 031
     Dates: start: 20211129, end: 20211129
  3. TENOLOL [Concomitant]

REACTIONS (4)
  - Surgery [Unknown]
  - Iris atrophy [Not Recovered/Not Resolved]
  - Eye disorder [Not Recovered/Not Resolved]
  - Iris discolouration [Not Recovered/Not Resolved]

NARRATIVE: CASE EVENT DATE: 20220301
